FAERS Safety Report 26051474 (Version 1)
Quarter: 2025Q4

REPORT INFORMATION
  Report Type: Spontaneous
  Country: JP (occurrence: JP)
  Receive Date: 20251117
  Receipt Date: 20251117
  Transmission Date: 20260118
  Serious: Yes (Other)
  Sender: JOHNSON AND JOHNSON
  Company Number: JP-BAYER-2025A142683

PATIENT
  Age: 12 Year
  Sex: Male

DRUGS (2)
  1. XARELTO [Suspect]
     Active Substance: RIVAROXABAN
     Indication: Embolism venous
     Dosage: DAILY DOSE 15 MG
     Route: 048
     Dates: start: 20251029, end: 20251105
  2. XARELTO [Suspect]
     Active Substance: RIVAROXABAN
     Dosage: DAILY DOSE 15 MG
     Route: 048
     Dates: start: 20251108

REACTIONS (1)
  - Leukaemia [Unknown]
